FAERS Safety Report 13254497 (Version 1)
Quarter: 2017Q1

REPORT INFORMATION
  Report Type: Spontaneous
  Country: BE (occurrence: BE)
  Receive Date: 20170221
  Receipt Date: 20170221
  Transmission Date: 20170428
  Serious: Yes (Other)
  Sender: FDA-Public Use
  Company Number: BE-009507513-1702BEL006970

PATIENT
  Age: 21 Year
  Sex: Female

DRUGS (2)
  1. IMPLANON [Suspect]
     Active Substance: ETONOGESTREL
     Dosage: 1 IMPLANT, UNK
     Route: 030
  2. IMPLANON [Suspect]
     Active Substance: ETONOGESTREL
     Dosage: 1 IMPLANT, UNK
     Route: 059
     Dates: start: 2017

REACTIONS (5)
  - Surgery [Unknown]
  - General anaesthesia [Unknown]
  - Device deployment issue [Not Recovered/Not Resolved]
  - Device difficult to use [Not Recovered/Not Resolved]
  - Overdose [Unknown]

NARRATIVE: CASE EVENT DATE: 2017
